FAERS Safety Report 8207160-5 (Version None)
Quarter: 2012Q1

REPORT INFORMATION
  Report Type: 
  Country: None (occurrence: None)
  Receive Date: 20120314
  Receipt Date: 20120306
  Transmission Date: 20120608
  Serious: No
  Sender: FDA-Public Use
  Company Number: US-PFIZER INC-2012062210

PATIENT
  Sex: Female
  Weight: 47.2 kg

DRUGS (2)
  1. LO/OVRAL-28 [Suspect]
     Indication: CONTRACEPTION
  2. LO/OVRAL-28 [Suspect]

REACTIONS (2)
  - DRUG DOSE OMISSION [None]
  - UNINTENDED PREGNANCY [None]
